FAERS Safety Report 8477119 (Version 8)
Quarter: 2013Q1

REPORT INFORMATION
  Report Type: Spontaneous
  Country: US (occurrence: US)
  Receive Date: 20120326
  Receipt Date: 20130116
  Transmission Date: 20140127
  Serious: Yes (Hospitalization, Other)
  Sender: FDA-Public Use
  Company Number: US-009507513-1203USA02845

PATIENT
  Sex: 0

DRUGS (12)
  1. FOSAMAX [Suspect]
     Indication: OSTEOPENIA
     Dosage: 70 MG, UNK
     Route: 048
     Dates: start: 200101, end: 200803
  2. FOSAMAX [Suspect]
     Indication: OSTEOPENIA
     Dosage: 70 MG, UNK
     Route: 048
     Dates: start: 200804, end: 201105
  3. CALCIUM (UNSPECIFIED) (+) VITAMIN D (UNSPECIFIED) [Concomitant]
     Dosage: UNK
     Dates: start: 1990
  4. CENTRUM SILVER [Concomitant]
     Dosage: UNK
     Dates: start: 1980
  5. MAGNESIUM (UNSPECIFIED) [Concomitant]
     Dosage: UNK
     Dates: start: 1985
  6. VITAMIN D (UNSPECIFIED) [Concomitant]
     Dosage: UNK
     Dates: start: 2000
  7. OMEGA-3 MARINE TRIGLYCERIDES [Concomitant]
     Dosage: UNK
     Dates: start: 1990
  8. CYANOCOBALAMIN [Concomitant]
     Dosage: UNK
     Dates: start: 2000
  9. GLUCOSAMINE [Concomitant]
     Dosage: UNK
     Dates: start: 2000
  10. GRAPE SEED OIL [Concomitant]
     Dosage: UNK
     Dates: start: 1990
  11. ATROVENT [Concomitant]
     Indication: HYPERSENSITIVITY
  12. NEURONTIN [Concomitant]
     Indication: OSTEOPENIA

REACTIONS (78)
  - Open reduction of fracture [Unknown]
  - Open reduction of fracture [Unknown]
  - Fracture nonunion [Unknown]
  - Hip fracture [Unknown]
  - Femur fracture [Unknown]
  - Fracture nonunion [Unknown]
  - Stress fracture [Unknown]
  - Device failure [Unknown]
  - Device failure [Unknown]
  - Basal cell carcinoma [Not Recovered/Not Resolved]
  - Intestinal resection [Unknown]
  - Micrographic skin surgery [Unknown]
  - Enteritis [Unknown]
  - Arthroscopy [Unknown]
  - Arthropathy [Unknown]
  - Skin cancer [Unknown]
  - Hearing impaired [Unknown]
  - Anaemia postoperative [Recovered/Resolved]
  - Leukocytosis [Unknown]
  - Renal failure acute [Unknown]
  - Gallbladder disorder [Unknown]
  - Femur fracture [Recovered/Resolved]
  - Femur fracture [Recovered/Resolved]
  - Calcium deficiency [Unknown]
  - Low turnover osteopathy [Unknown]
  - Arthritis [Unknown]
  - Urinary incontinence [Unknown]
  - Anaemia [Unknown]
  - Perineurial cyst [Unknown]
  - Nerve root compression [Unknown]
  - Synovial cyst [Unknown]
  - Depression [Unknown]
  - Intervertebral disc degeneration [Unknown]
  - Spondylolisthesis [Unknown]
  - Nerve root compression [Unknown]
  - Spinal osteoarthritis [Unknown]
  - Lumbar radiculopathy [Unknown]
  - Sexual dysfunction [Unknown]
  - Cystoscopy [Unknown]
  - Adverse drug reaction [Unknown]
  - Tinnitus [Unknown]
  - Chest pain [Unknown]
  - Breast disorder [Unknown]
  - Bandaemia [Unknown]
  - Intervertebral disc degeneration [Unknown]
  - Perineurial cyst [Unknown]
  - Paraesthesia [Unknown]
  - Limb malformation [Unknown]
  - Carpal tunnel syndrome [Unknown]
  - Gait disturbance [Unknown]
  - Ligament rupture [Unknown]
  - Bursitis [Unknown]
  - Osteoarthritis [Unknown]
  - Osteoarthritis [Unknown]
  - Cellulitis [Unknown]
  - Nasal septum perforation [Unknown]
  - Bursitis [Unknown]
  - Arthropathy [Unknown]
  - Rheumatoid arthritis [Unknown]
  - Pain [Unknown]
  - Hypertensive heart disease [Unknown]
  - Iron deficiency anaemia [Unknown]
  - Intervertebral disc disorder [Unknown]
  - Fibrocystic breast disease [Unknown]
  - Normochromic normocytic anaemia [Unknown]
  - Red blood cell sedimentation rate increased [Unknown]
  - Biopsy bone marrow [Unknown]
  - Sciatica [Unknown]
  - Cardiomyopathy [Unknown]
  - Joint injury [Unknown]
  - Fall [Unknown]
  - Cystocele repair [Unknown]
  - Arthralgia [Unknown]
  - Arthralgia [Unknown]
  - Constipation [Unknown]
  - Back pain [Unknown]
  - Muscle spasms [Recovered/Resolved]
  - Arthralgia [Unknown]
